FAERS Safety Report 25989396 (Version 1)
Quarter: 2025Q4

REPORT INFORMATION
  Report Type: Spontaneous
  Country: CN (occurrence: CN)
  Receive Date: 20251103
  Receipt Date: 20251103
  Transmission Date: 20260118
  Serious: Yes (Other)
  Sender: MERCK SHARP & DOHME LLC
  Company Number: CN-009507513-2343120

PATIENT
  Age: 57 Year
  Sex: Female

DRUGS (2)
  1. ERTAPENEM [Suspect]
     Active Substance: ERTAPENEM
     Indication: Pneumonia
     Dates: start: 20210129, end: 20210201
  2. PIPERACILLIN AND TAZOBACTAM [Concomitant]
     Active Substance: PIPERACILLIN SODIUM\TAZOBACTAM SODIUM
     Indication: Pneumonia
     Dates: start: 20210122, end: 20210129

REACTIONS (3)
  - Wernicke-Korsakoff syndrome [Recovered/Resolved]
  - Vitamin B1 deficiency [Recovering/Resolving]
  - Decreased appetite [Recovering/Resolving]

NARRATIVE: CASE EVENT DATE: 20210201
